FAERS Safety Report 25434845 (Version 1)
Quarter: 2025Q2

REPORT INFORMATION
  Report Type: Report from Study
  Country: US (occurrence: US)
  Receive Date: 20250613
  Receipt Date: 20250613
  Transmission Date: 20250717
  Serious: Yes (Other)
  Sender: ABBVIE
  Company Number: US-ABBVIE-6319133

PATIENT
  Age: 53 Year
  Sex: Male

DRUGS (1)
  1. RINVOQ [Suspect]
     Active Substance: UPADACITINIB
     Indication: Colitis ulcerative
     Route: 048
     Dates: start: 20241031

REACTIONS (3)
  - Fistula [Recovered/Resolved]
  - Pain [Recovering/Resolving]
  - Fistula [Recovering/Resolving]

NARRATIVE: CASE EVENT DATE: 20250515
